FAERS Safety Report 16937271 (Version 1)
Quarter: 2019Q4

REPORT INFORMATION
  Report Type: Spontaneous
  Country: MY (occurrence: MY)
  Receive Date: 20191018
  Receipt Date: 20191018
  Transmission Date: 20200122
  Serious: Yes (Death, Hospitalization)
  Sender: FDA-Public Use
  Company Number: MY-JNJFOC-20191023505

PATIENT
  Age: 59 Year
  Sex: Female

DRUGS (1)
  1. RIVAROXABAN [Suspect]
     Active Substance: RIVAROXABAN
     Indication: ATRIAL FIBRILLATION
     Dosage: 20 MG, QD
     Route: 048
     Dates: start: 201811

REACTIONS (2)
  - Renal cell carcinoma [Unknown]
  - Retroperitoneal haemorrhage [Fatal]

NARRATIVE: CASE EVENT DATE: 20181223
